FAERS Safety Report 26032525 (Version 1)
Quarter: 2025Q4

REPORT INFORMATION
  Report Type: Spontaneous
  Country: CN (occurrence: CN)
  Receive Date: 20251112
  Receipt Date: 20251112
  Transmission Date: 20260117
  Serious: Yes (Other)
  Sender: BAXTER
  Company Number: None

PATIENT
  Age: 57 Year
  Sex: Female
  Weight: 66 kg

DRUGS (2)
  1. CYCLOPHOSPHAMIDE [Suspect]
     Active Substance: CYCLOPHOSPHAMIDE
     Indication: Neoplasm malignant
     Dosage: 0.9 G, QD, IVGTT (WITH 0.9% SODIUM CHLORIDE INJECTION 500 ML)
     Route: 041
     Dates: start: 20251030, end: 20251030
  2. SODIUM CHLORIDE [Suspect]
     Active Substance: SODIUM CHLORIDE
     Dosage: 500 ML, QD, IVGTT (WITH CYCLOPHOSPHAMIDE FOR INJECTION 0.9 G)
     Route: 041
     Dates: start: 20251030, end: 20251030

REACTIONS (4)
  - Myelosuppression [Unknown]
  - White blood cell count decreased [Unknown]
  - Red blood cell count decreased [Unknown]
  - Haemoglobin decreased [Unknown]

NARRATIVE: CASE EVENT DATE: 20251101
